FAERS Safety Report 7611221-9 (Version None)
Quarter: 2011Q3

REPORT INFORMATION
  Report Type: 
  Country: None (occurrence: None)
  Receive Date: 20110715
  Receipt Date: 20110712
  Transmission Date: 20111222
  Serious: Yes (Life-Threatening, Other)
  Sender: FDA-Public Use
  Company Number: US-SANOFI-AVENTIS-2011SA044788

PATIENT
  Age: 48 Year
  Sex: Female

DRUGS (7)
  1. MULTAQ [Suspect]
     Indication: ATRIAL FIBRILLATION
     Route: 048
     Dates: start: 20090901, end: 20110614
  2. DIGOXIN [Concomitant]
  3. SIMVASTATIN [Concomitant]
  4. ENALAPRIL MALEATE [Concomitant]
  5. MICARDIS [Concomitant]
  6. CARVEDILOL [Concomitant]
  7. METFORMIN HCL [Concomitant]

REACTIONS (1)
  - HEPATIC NECROSIS [None]
